FAERS Safety Report 7744019-1 (Version None)
Quarter: 2011Q3

REPORT INFORMATION
  Report Type: 
  Country: None (occurrence: None)
  Receive Date: 20110909
  Receipt Date: 20110909
  Transmission Date: 20111222
  Serious: No
  Sender: FDA-Public Use
  Company Number: None

PATIENT
  Age: 63 Year
  Sex: Female
  Weight: 56.6996 kg

DRUGS (1)
  1. NAPRELAN [Suspect]
     Indication: INFLAMMATION
     Dosage: 1 TABLET TWICE A DAY
     Dates: start: 20100201, end: 20100501

REACTIONS (2)
  - PRODUCT ODOUR ABNORMAL [None]
  - DYSGEUSIA [None]
